FAERS Safety Report 12678318 (Version 1)
Quarter: 2016Q3

REPORT INFORMATION
  Report Type: Spontaneous
  Country: GB (occurrence: GB)
  Receive Date: 20160823
  Receipt Date: 20160823
  Transmission Date: 20161109
  Serious: Yes (Hospitalization, Other)
  Sender: FDA-Public Use
  Company Number: GB-TEVA-684723ACC

PATIENT
  Age: 41 Year
  Sex: Female
  Weight: 58.96 kg

DRUGS (6)
  1. CITALOPRAM [Suspect]
     Active Substance: CITALOPRAM HYDROBROMIDE
     Dosage: ALTERNATING WITH 5MG
     Route: 048
  2. CITALOPRAM [Suspect]
     Active Substance: CITALOPRAM HYDROBROMIDE
     Dosage: EVERY OTHER DAY
     Route: 048
  3. ACTAVIS UK PREDNISOLONE [Concomitant]
     Dates: start: 1997
  4. GENERICS UK SULPHASALAZINE [Concomitant]
  5. CITALOPRAM [Suspect]
     Active Substance: CITALOPRAM HYDROBROMIDE
     Indication: ANXIETY
     Dosage: ALTERNATING WITH 7.5MG
     Route: 048
  6. CITALOPRAM [Suspect]
     Active Substance: CITALOPRAM HYDROBROMIDE
     Route: 048

REACTIONS (5)
  - Heart rate abnormal [Unknown]
  - Palpitations [Not Recovered/Not Resolved]
  - Ventricular tachycardia [Not Recovered/Not Resolved]
  - Blood pressure decreased [Unknown]
  - Syncope [Unknown]
